FAERS Safety Report 6009067-0 (Version None)
Quarter: 2008Q4

REPORT INFORMATION
  Report Type: 
  Country: None (occurrence: None)
  Receive Date: 20081217
  Receipt Date: 20081210
  Transmission Date: 20090506
  Serious: Yes (Other)
  Sender: FDA-Public Use
  Company Number: US-GENENTECH-242528

PATIENT
  Sex: Female
  Weight: 56.236 kg

DRUGS (8)
  1. OMALIZUMAB [Suspect]
     Indication: ASTHMA
     Dosage: 150 MG, Q2W
     Dates: start: 20050831
  2. UNIPHYL [Concomitant]
     Indication: ASTHMA
  3. ADVAIR DISKUS 250/50 [Concomitant]
     Indication: ASTHMA
  4. ALBUTEROL [Concomitant]
     Indication: ASTHMA
  5. ALLERGY SHOTS [Concomitant]
     Indication: HYPERSENSITIVITY
  6. CLARITIN [Concomitant]
     Indication: HYPERSENSITIVITY
  7. PULMICORT-100 [Concomitant]
     Indication: ASTHMA
  8. VITAMIN TAB [Concomitant]
     Indication: PREGNANCY

REACTIONS (2)
  - DRUG EXPOSURE DURING PREGNANCY [None]
  - STILLBIRTH [None]
